FAERS Safety Report 22239902 (Version 2)
Quarter: 2023Q2

REPORT INFORMATION
  Report Type: Report from Study
  Country: GB (occurrence: GB)
  Receive Date: 20230421
  Receipt Date: 20230426
  Transmission Date: 20230722
  Serious: Yes (Hospitalization)
  Sender: FDA-Public Use
  Company Number: GB-MYLANLABS-2023M1042991

PATIENT
  Age: 5 Decade
  Sex: Male

DRUGS (1)
  1. CLOZAPINE [Suspect]
     Active Substance: CLOZAPINE
     Indication: Product used for unknown indication
     Dosage: 700 MILLIGRAM, QD
     Route: 065

REACTIONS (7)
  - Respiratory failure [Recovering/Resolving]
  - Wound dehiscence [Recovering/Resolving]
  - Gastrointestinal hypomotility [Recovering/Resolving]
  - Intestinal ischaemia [Recovering/Resolving]
  - Megacolon [Recovering/Resolving]
  - Sepsis [Recovering/Resolving]
  - Pneumonia [Recovering/Resolving]
